FAERS Safety Report 15481160 (Version 6)
Quarter: 2022Q1

REPORT INFORMATION
  Report Type: Spontaneous
  Country: PL (occurrence: PL)
  Receive Date: 20181010
  Receipt Date: 20220317
  Transmission Date: 20220423
  Serious: Yes (Life-Threatening, Hospitalization, Other)
  Sender: FDA-Public Use
  Company Number: PL-AUROBINDO-AUR-APL-2018-020612

PATIENT
  Age: 58 Year
  Sex: Female

DRUGS (23)
  1. CLOPIDOGREL [Suspect]
     Active Substance: CLOPIDOGREL BISULFATE
     Indication: Product used for unknown indication
     Dosage: UNK
     Route: 065
  2. CYCLOSPORINE [Suspect]
     Active Substance: CYCLOSPORINE
     Indication: Product used for unknown indication
     Dosage: UNK
     Route: 065
     Dates: start: 2016
  3. FLUCONAZOLE [Suspect]
     Active Substance: FLUCONAZOLE
     Indication: Product used for unknown indication
     Dosage: UNK
     Route: 065
  4. LINEZOLID [Suspect]
     Active Substance: LINEZOLID
     Indication: Product used for unknown indication
     Dosage: UNK
     Route: 065
     Dates: start: 2016
  5. MYCOPHENOLATE MOFETIL [Suspect]
     Active Substance: MYCOPHENOLATE MOFETIL
     Indication: Renal transplant
     Dosage: UNK
     Route: 065
  6. PIPERACILLIN AND TAZOBACTAM [Suspect]
     Active Substance: PIPERACILLIN SODIUM\TAZOBACTAM SODIUM
     Indication: Product used for unknown indication
     Dosage: 1 DOSAGE FORM = PIPERACILLIN + TAZOBACTAM ()
     Route: 065
     Dates: start: 201612
  7. ASPIRIN [Suspect]
     Active Substance: ASPIRIN
     Indication: Renal transplant
     Dosage: UNK
     Route: 065
     Dates: start: 2016
  8. ENVARSUS XR [Suspect]
     Active Substance: TACROLIMUS
     Indication: Renal transplant
     Dosage: UNK, FREQ.
     Route: 065
  9. ENVARSUS XR [Suspect]
     Active Substance: TACROLIMUS
     Indication: Immunosuppressant drug therapy
     Dosage: UNK
     Route: 065
     Dates: start: 2016
  10. CIPROFLOXACIN [Suspect]
     Active Substance: CIPROFLOXACIN
     Indication: Product used for unknown indication
     Dosage: UNK
     Route: 065
     Dates: start: 201612
  11. MYCOPHENOLIC ACID [Suspect]
     Active Substance: MYCOPHENOLIC ACID
     Indication: Renal transplant
     Dosage: UNK
     Route: 065
     Dates: start: 201606
  12. MYCOPHENOLIC ACID [Suspect]
     Active Substance: MYCOPHENOLIC ACID
     Indication: Immunosuppressant drug therapy
  13. MEROPENEM [Suspect]
     Active Substance: MEROPENEM
     Indication: Product used for unknown indication
     Dosage: UNK
     Route: 065
     Dates: start: 2016
  14. METHYLPREDNISOLONE [Suspect]
     Active Substance: METHYLPREDNISOLONE
     Indication: Product used for unknown indication
     Dosage: 500 MILLIGRAM, : FIVE PULSES OF METHYLPREDNISOLONE 500 MG WERE ADMINISTERED INTRAVENOUSLY
     Route: 042
     Dates: start: 201612
  15. MIDAZOLAM [Suspect]
     Active Substance: MIDAZOLAM
     Indication: Sedation
     Dosage: UNK, FREQ.
     Route: 065
  16. SIMULECT [Suspect]
     Active Substance: BASILIXIMAB
     Indication: Renal transplant
     Dosage: UNK
     Route: 065
  17. SIMULECT [Suspect]
     Active Substance: BASILIXIMAB
     Indication: Immune tolerance induction
  18. SIMULECT [Suspect]
     Active Substance: BASILIXIMAB
     Indication: Immunosuppressant drug therapy
  19. SULFAMETHOXAZOLE\TRIMETHOPRIM [Suspect]
     Active Substance: SULFAMETHOXAZOLE\TRIMETHOPRIM
     Indication: C-reactive protein increased
     Dosage: 1 DOSAGE FORM = COTRIMOXAZOLE + TRIMETHOPRIM
     Route: 065
     Dates: start: 201612
  20. SULFAMETHOXAZOLE\TRIMETHOPRIM [Suspect]
     Active Substance: SULFAMETHOXAZOLE\TRIMETHOPRIM
     Indication: Urinary tract infection
  21. TACROLIMUS [Suspect]
     Active Substance: TACROLIMUS
     Indication: Renal transplant
     Dosage: UNK UNK, UNKNOWN FREQ.
     Route: 065
     Dates: start: 201606, end: 201606
  22. TICAGRELOR [Suspect]
     Active Substance: TICAGRELOR
     Indication: Acute coronary syndrome
     Dosage: UNK
     Route: 048
  23. NOREPINEPHRINE [Concomitant]
     Active Substance: NOREPINEPHRINE
     Indication: Cardiac disorder
     Dosage: 10 MILLILITER, EVERY HOUR (1 HOUR)
     Route: 065
     Dates: start: 2016

REACTIONS (36)
  - Renal impairment [Unknown]
  - Electrolyte imbalance [Recovered/Resolved]
  - Haematoma [Not Recovered/Not Resolved]
  - Upper respiratory tract infection [Unknown]
  - Cardiogenic shock [Recovered/Resolved]
  - Anuria [Not Recovered/Not Resolved]
  - Pneumonitis [Not Recovered/Not Resolved]
  - Pulmonary congestion [Unknown]
  - Arrhythmia [Unknown]
  - Coronary artery stenosis [Unknown]
  - Cardiotoxicity [Unknown]
  - Dyspnoea [Unknown]
  - Electrocardiogram ST segment depression [Unknown]
  - Transplant rejection [Unknown]
  - Thrombocytosis [Unknown]
  - Anaemia [Unknown]
  - Loss of consciousness [Unknown]
  - Delayed graft function [Unknown]
  - Inflammation [Recovering/Resolving]
  - Oedema peripheral [Unknown]
  - Acute coronary syndrome [Unknown]
  - Brain natriuretic peptide increased [Unknown]
  - Intermittent claudication [Unknown]
  - Cardiac arrest [Not Recovered/Not Resolved]
  - Diabetic macroangiopathy [Unknown]
  - Escherichia urinary tract infection [Unknown]
  - Hypotonia [Unknown]
  - Arteriosclerosis [Unknown]
  - Extremity necrosis [Unknown]
  - Immunosuppressant drug level increased [Unknown]
  - Cardiac failure [Unknown]
  - Acid base balance abnormal [Recovering/Resolving]
  - Blood creatinine increased [Unknown]
  - Asthenia [Unknown]
  - Hypotension [Recovering/Resolving]
  - Condition aggravated [Unknown]

NARRATIVE: CASE EVENT DATE: 20160101
